FAERS Safety Report 23693493 (Version 1)
Quarter: 2024Q2

REPORT INFORMATION
  Report Type: Spontaneous
  Country: PT (occurrence: PT)
  Receive Date: 20240401
  Receipt Date: 20240401
  Transmission Date: 20240715
  Serious: Yes (Other)
  Sender: FDA-Public Use
  Company Number: None

PATIENT
  Age: 1 Year
  Sex: Male
  Weight: 10.8 kg

DRUGS (1)
  1. AMOXICILLIN\CLAVULANIC ACID [Suspect]
     Active Substance: AMOXICILLIN\CLAVULANIC ACID
     Indication: Otitis media acute
     Dosage: 4 MILLILITERS OF 12/12H?AMOXICILINA + ?CIDO CLAVUL?NICO
     Route: 048
     Dates: start: 20240219, end: 20240222

REACTIONS (3)
  - Rash [Unknown]
  - Rash [Unknown]
  - Umbilical erythema [Unknown]

NARRATIVE: CASE EVENT DATE: 20240222
